FAERS Safety Report 14678944 (Version 1)
Quarter: 2018Q1

REPORT INFORMATION
  Report Type: Spontaneous
  Country: DE (occurrence: DE)
  Receive Date: 20180326
  Receipt Date: 20180326
  Transmission Date: 20180509
  Serious: Yes (Other)
  Sender: FDA-Public Use
  Company Number: DE-AUROBINDO-AUR-APL-2018-016120

PATIENT
  Age: 69 Year
  Sex: Female

DRUGS (3)
  1. CITALOPRAM FILM-COATED TABLET [Suspect]
     Active Substance: CITALOPRAM HYDROBROMIDE
     Indication: PRODUCT USED FOR UNKNOWN INDICATION
     Dosage: UNK
     Route: 048
     Dates: start: 20070122, end: 20070215
  2. KATADOLON S [Suspect]
     Active Substance: FLUPIRTINE
     Indication: PRODUCT USED FOR UNKNOWN INDICATION
     Dosage: 400 MILLIGRAM DAILY
     Route: 048
     Dates: start: 20061211, end: 20070215
  3. NEXIUM MUPS /01479302/ [Suspect]
     Active Substance: ESOMEPRAZOLE MAGNESIUM
     Indication: PRODUCT USED FOR UNKNOWN INDICATION
     Dosage: 20 MILLIGRAM DAILY
     Route: 048
     Dates: start: 20070122, end: 20070215

REACTIONS (1)
  - Cholestasis [Recovering/Resolving]
